FAERS Safety Report 8962836 (Version 1)
Quarter: 2012Q4

REPORT INFORMATION
  Report Type: 
  Country: PT (occurrence: PT)
  Receive Date: 20121213
  Receipt Date: 20121213
  Transmission Date: 20130627
  Serious: Yes (Other)
  Sender: FDA-Public Use
  Company Number: PT-BAYER-2012-129744

PATIENT
  Sex: Female

DRUGS (1)
  1. BETAFERON [Suspect]
     Indication: SECONDARY PROGRESSIVE MULTIPLE SCLEROSIS
     Dosage: 250 mcg/mL, QOD
     Route: 058
     Dates: start: 20030626, end: 20121207

REACTIONS (3)
  - Multiple sclerosis [None]
  - Balance disorder [None]
  - Gait disturbance [None]
